FAERS Safety Report 8064205-3 (Version None)
Quarter: 2012Q1

REPORT INFORMATION
  Report Type: 
  Country: None (occurrence: None)
  Receive Date: 20120123
  Receipt Date: 20120112
  Transmission Date: 20120608
  Serious: Yes (Death, Life-Threatening, Hospitalization)
  Sender: FDA-Public Use
  Company Number: US-ROCHE-1029816

PATIENT
  Age: 65 Year
  Sex: Male
  Weight: 79 kg

DRUGS (6)
  1. AVASTIN [Suspect]
     Indication: COLON CANCER METASTATIC
     Dosage: OVER 30-90MINS ON DAY 1, DATE OF LAST ADMINISTRATION: 08/FEB/2006
     Route: 042
     Dates: start: 20051221
  2. ARANESP [Concomitant]
     Indication: ANAEMIA
  3. FLUOROURACIL [Suspect]
     Indication: COLON CANCER METASTATIC
     Dosage: ON DAY 1, DATE OF LAST ADMINISTRATION: 10/FEB/2006, HAD MINOR DOSE ADJUSTMENTS BASED ON BSA - WEIGHT
     Route: 040
     Dates: start: 20051221
  4. OXALIPLATIN [Suspect]
     Indication: COLON CANCER METASTATIC
     Dosage: OVER 2 HRS ON DAY 1, DATE OF LAST ADMINISTRATION: 08/FEB/2006
     Route: 042
     Dates: start: 20051221
  5. FLUOROURACIL [Suspect]
     Dosage: UNIT DOSE: 2.4GM/M2, CIV OVER 46 HRS STARTING ON DAY 1.
     Route: 041
  6. LEUCOVORIN CALCIUM [Suspect]
     Indication: COLON CANCER METASTATIC
     Dosage: OVER 2 HRS ON DAY 1, DATE OF LAST ADMINISTRATION: 08/FEB/2006
     Route: 042
     Dates: start: 20051221

REACTIONS (5)
  - HEPATIC FAILURE [None]
  - DEATH [None]
  - RENAL FAILURE ACUTE [None]
  - ATRIAL FLUTTER [None]
  - ALANINE AMINOTRANSFERASE INCREASED [None]
